FAERS Safety Report 17767733 (Version 1)
Quarter: 2020Q2

REPORT INFORMATION
  Report Type: Spontaneous
  Country: BR (occurrence: BR)
  Receive Date: 20200511
  Receipt Date: 20200511
  Transmission Date: 20200714
  Serious: Yes (Other)
  Sender: FDA-Public Use
  Company Number: BR-ELI_LILLY_AND_COMPANY-BR201912004687

PATIENT
  Sex: Female

DRUGS (3)
  1. FORTEO [Suspect]
     Active Substance: TERIPARATIDE
     Indication: OSTEOPOROSIS
     Dosage: UNK UNK, UNKNOWN
     Route: 065
  2. FORTEO [Suspect]
     Active Substance: TERIPARATIDE
     Indication: BONE DISORDER
     Dosage: UNK UNK, UNKNOWN
     Route: 065
     Dates: start: 20191121
  3. PURAN [Concomitant]
     Active Substance: LEVOTHYROXINE SODIUM
     Indication: PRODUCT USED FOR UNKNOWN INDICATION
     Dosage: UNK UNK, UNKNOWN
     Route: 065

REACTIONS (18)
  - Asthenia [Unknown]
  - Repetitive speech [Unknown]
  - Muscle spasms [Unknown]
  - Loss of consciousness [Unknown]
  - Paraesthesia [Unknown]
  - Petit mal epilepsy [Unknown]
  - Gastrointestinal hypermotility [Unknown]
  - Alopecia [Unknown]
  - Confusional state [Unknown]
  - Back pain [Unknown]
  - Balance disorder [Unknown]
  - Headache [Unknown]
  - Pruritus [Unknown]
  - Memory impairment [Unknown]
  - Malaise [Unknown]
  - Nausea [Unknown]
  - Migraine [Unknown]
  - Chills [Unknown]
